FAERS Safety Report 20818103 (Version 4)
Quarter: 2022Q2

REPORT INFORMATION
  Report Type: Report from Study
  Country: US (occurrence: None)
  Receive Date: 20220512
  Receipt Date: 20220603
  Transmission Date: 20220721
  Serious: Yes (Hospitalization, Other)
  Sender: FDA-Public Use
  Company Number: US-ROCHE-3091064

PATIENT
  Age: 57 Year
  Sex: Male
  Weight: 80.3 kg

DRUGS (3)
  1. TOCILIZUMAB [Suspect]
     Active Substance: TOCILIZUMAB
     Indication: Glioblastoma multiforme
     Dosage: LAST ADMINISTERED DATE: 18/MAR/2022
     Route: 042
     Dates: start: 20220318, end: 20220318
  2. DEXAMETHASONE [Concomitant]
     Active Substance: DEXAMETHASONE
     Indication: Brain oedema
     Route: 048
     Dates: start: 20220330
  3. DEXAMETHASONE [Concomitant]
     Active Substance: DEXAMETHASONE
     Route: 048
     Dates: start: 20220402

REACTIONS (4)
  - Seizure [Recovered/Resolved]
  - Alanine aminotransferase increased [Recovered/Resolved]
  - Craniotomy [Not Recovered/Not Resolved]
  - Partial seizures [Not Recovered/Not Resolved]

NARRATIVE: CASE EVENT DATE: 20220330
